FAERS Safety Report 23729264 (Version 1)
Quarter: 2024Q2

REPORT INFORMATION
  Report Type: Spontaneous
  Country: US (occurrence: US)
  Receive Date: 20240410
  Receipt Date: 20240410
  Transmission Date: 20240716
  Serious: No
  Sender: FDA-Public Use
  Company Number: US-FOUNDATIONCONSUMERHC-2024-US-003941

PATIENT
  Age: 36 Year
  Sex: Female
  Weight: 51.71 kg

DRUGS (1)
  1. TAKE ACTION [Suspect]
     Active Substance: LEVONORGESTREL
     Indication: Post coital contraception
     Dosage: 1 PILL X 2 DOSES
     Route: 048
     Dates: start: 20231202, end: 20231203

REACTIONS (3)
  - Intentional product misuse [Recovered/Resolved]
  - Menstruation delayed [Not Recovered/Not Resolved]
  - Incorrect dosage administered [Recovered/Resolved]

NARRATIVE: CASE EVENT DATE: 20231202
